FAERS Safety Report 7048532-4 (Version None)
Quarter: 2010Q4

REPORT INFORMATION
  Report Type: 
  Country: None (occurrence: None)
  Receive Date: 20101007
  Receipt Date: 20100929
  Transmission Date: 20110411
  Serious: Yes (Hospitalization)
  Sender: FDA-Public Use
  Company Number: 2010SP031284

PATIENT
  Age: 32 Year
  Sex: Female
  Weight: 79.3795 kg

DRUGS (2)
  1. NUVARING [Suspect]
     Indication: ANALGESIC THERAPY
     Dosage: VAG
     Route: 067
     Dates: start: 20080528, end: 20080601
  2. NUVARING [Suspect]
     Indication: CONTRACEPTION
     Dosage: VAG
     Route: 067
     Dates: start: 20080528, end: 20080601

REACTIONS (20)
  - ANAEMIA [None]
  - ATELECTASIS [None]
  - CONVULSION [None]
  - DEEP VEIN THROMBOSIS [None]
  - DELIRIUM [None]
  - GASTROOESOPHAGEAL REFLUX DISEASE [None]
  - HEADACHE [None]
  - HYPERLIPIDAEMIA [None]
  - HYPERTENSION [None]
  - HYPOXIA [None]
  - LIVER FUNCTION TEST ABNORMAL [None]
  - MEDICAL DEVICE COMPLICATION [None]
  - PHLEBITIS [None]
  - POST-TRAUMATIC STRESS DISORDER [None]
  - PULMONARY EMBOLISM [None]
  - PULMONARY INFARCTION [None]
  - RAYNAUD'S PHENOMENON [None]
  - SINUS TACHYCARDIA [None]
  - SYSTEMIC LUPUS ERYTHEMATOSUS [None]
  - TRANSIENT ISCHAEMIC ATTACK [None]
